FAERS Safety Report 8961901 (Version 2)
Quarter: 2013Q1

REPORT INFORMATION
  Report Type: Spontaneous
  Country: FR (occurrence: FR)
  Receive Date: 20121213
  Receipt Date: 20130206
  Transmission Date: 20140127
  Serious: Yes (Other)
  Sender: FDA-Public Use
  Company Number: FR-ELI_LILLY_AND_COMPANY-FR201212002899

PATIENT
  Age: 87 Year
  Sex: Female

DRUGS (6)
  1. FORSTEO [Suspect]
     Indication: OSTEOPOROSIS
     Dosage: 20 UG, QD
     Route: 058
     Dates: start: 20120523, end: 20121123
  2. ALTEIS [Concomitant]
     Indication: HYPERTENSION
     Dosage: 20 MG, QD
  3. VESICARE [Concomitant]
     Dosage: UNK
  4. OROCAL D3 [Concomitant]
     Dosage: 2 TABS, QD
  5. UVEDOSE [Concomitant]
     Dosage: 1 DOSE EVERY 2 MONTHS
     Dates: start: 201206
  6. CODOLIPRANE [Concomitant]
     Indication: PAIN
     Dosage: 2 TABS, QD
     Dates: start: 201206, end: 201211

REACTIONS (1)
  - Weight decreased [Unknown]
